FAERS Safety Report 17272177 (Version 9)
Quarter: 2020Q2

REPORT INFORMATION
  Report Type: Report from Study
  Country: FR (occurrence: FR)
  Receive Date: 20200115
  Receipt Date: 20200522
  Transmission Date: 20200713
  Serious: Yes (Death, Other)
  Sender: FDA-Public Use
  Company Number: FR-CELGENEUS-FRA-20200103355

PATIENT
  Age: 77 Year
  Sex: Male
  Weight: 60 kg

DRUGS (25)
  1. DEXAMETHASONE. [Suspect]
     Active Substance: DEXAMETHASONE
     Route: 048
     Dates: start: 20161017
  2. MLN 9708 [Suspect]
     Active Substance: IXAZOMIB
     Dosage: DOSE REDUCED
     Route: 048
     Dates: start: 20161121
  3. DUROGESIC [Concomitant]
     Active Substance: FENTANYL
     Indication: PRODUCT USED FOR UNKNOWN INDICATION
     Route: 065
  4. SCOPODERM [Concomitant]
     Active Substance: SCOPOLAMINE
     Indication: PRODUCT USED FOR UNKNOWN INDICATION
     Route: 065
  5. ALLOPURINOL. [Concomitant]
     Active Substance: ALLOPURINOL
     Indication: PRODUCT USED FOR UNKNOWN INDICATION
     Route: 065
  6. VASTEN [Concomitant]
     Indication: PRODUCT USED FOR UNKNOWN INDICATION
     Route: 065
  7. VELCADE [Concomitant]
     Active Substance: BORTEZOMIB
     Indication: PRODUCT USED FOR UNKNOWN INDICATION
     Route: 065
  8. ALKERAN [Concomitant]
     Active Substance: MELPHALAN
     Indication: PRODUCT USED FOR UNKNOWN INDICATION
     Route: 065
  9. IMNOVID [Suspect]
     Active Substance: POMALIDOMIDE
     Indication: PLASMA CELL MYELOMA
     Dosage: 2 MILLIGRAM
     Route: 048
     Dates: start: 2019
  10. DEXAMETHASONE. [Suspect]
     Active Substance: DEXAMETHASONE
     Indication: PLASMA CELL MYELOMA
     Route: 048
     Dates: start: 20150608
  11. MLN 9708 [Suspect]
     Active Substance: IXAZOMIB
     Route: 048
     Dates: start: 20170724
  12. ALKERAN [Concomitant]
     Active Substance: MELPHALAN
     Route: 065
  13. PREDNISOLONE. [Concomitant]
     Active Substance: PREDNISOLONE
     Indication: PRODUCT USED FOR UNKNOWN INDICATION
     Route: 065
  14. LENALIDOMIDE [Suspect]
     Active Substance: LENALIDOMIDE
     Dosage: 25 MILLIGRAM
     Route: 048
     Dates: start: 20170730
  15. MLN 9708 [Suspect]
     Active Substance: IXAZOMIB
     Indication: PLASMA CELL MYELOMA
     Route: 048
     Dates: start: 20150608
  16. OMEPRAZOLE. [Concomitant]
     Active Substance: OMEPRAZOLE
     Indication: PRODUCT USED FOR UNKNOWN INDICATION
     Route: 065
  17. PREDNISOLONE. [Concomitant]
     Active Substance: PREDNISOLONE
     Route: 065
  18. OXYGEN. [Concomitant]
     Active Substance: OXYGEN
     Indication: PRODUCT USED FOR UNKNOWN INDICATION
     Dosage: 4 L/MIN
     Route: 065
     Dates: start: 2020
  19. IMNOVID [Suspect]
     Active Substance: POMALIDOMIDE
     Dosage: 20 MILLIGRAM
     Route: 048
  20. XATRAL [Concomitant]
     Active Substance: ALFUZOSIN
     Indication: PRODUCT USED FOR UNKNOWN INDICATION
     Route: 065
  21. BISOCE [Concomitant]
     Active Substance: BISOPROLOL
     Indication: TACHYCARDIA
     Route: 065
  22. MORPHINE [Concomitant]
     Active Substance: MORPHINE
     Indication: PRODUCT USED FOR UNKNOWN INDICATION
     Route: 065
  23. LENALIDOMIDE [Suspect]
     Active Substance: LENALIDOMIDE
     Indication: MYELODYSPLASTIC SYNDROME
     Dosage: 25 MILLIGRAM
     Route: 048
     Dates: start: 20150608
  24. VELCADE [Concomitant]
     Active Substance: BORTEZOMIB
     Route: 065
  25. MIDAZOLAM. [Concomitant]
     Active Substance: MIDAZOLAM
     Indication: ANXIETY
     Dosage: 24 MILLIGRAM
     Route: 041
     Dates: start: 202003

REACTIONS (1)
  - Oesophageal adenocarcinoma [Fatal]

NARRATIVE: CASE EVENT DATE: 20191203
